FAERS Safety Report 16896721 (Version 2)
Quarter: 2019Q4

REPORT INFORMATION
  Report Type: Spontaneous
  Country: TW (occurrence: TW)
  Receive Date: 20191008
  Receipt Date: 20191126
  Transmission Date: 20200122
  Serious: Yes (Death, Other)
  Sender: FDA-Public Use
  Company Number: TW-AMGEN-TWNSP2019098603

PATIENT
  Age: 47 Year
  Sex: Male

DRUGS (1)
  1. ENBREL [Suspect]
     Active Substance: ETANERCEPT
     Indication: RHEUMATOID ARTHRITIS
     Dosage: 25 MILLIGRAM, Q5D (6 PER 1 MONTH)
     Route: 058
     Dates: start: 201603, end: 20190613

REACTIONS (5)
  - Alanine aminotransferase increased [Not Recovered/Not Resolved]
  - Hepatic failure [Fatal]
  - Aspartate aminotransferase increased [Not Recovered/Not Resolved]
  - Respiratory failure [Fatal]
  - Off label use [Unknown]

NARRATIVE: CASE EVENT DATE: 201603
